FAERS Safety Report 7490011-4 (Version None)
Quarter: 2011Q2

REPORT INFORMATION
  Report Type: 
  Country: None (occurrence: None)
  Receive Date: 20110512
  Receipt Date: 20110428
  Transmission Date: 20111010
  Serious: Yes (Hospitalization)
  Sender: FDA-Public Use
  Company Number: DSJ-2011-08360

PATIENT
  Age: 5 Decade
  Sex: Female

DRUGS (4)
  1. INDAPAMIDE [Concomitant]
  2. METFORMIN HCL [Concomitant]
  3. GLIMEPIRIDE (GLIMEPIRIDE) (GLIMEPIRIDE) [Concomitant]
  4. AMLODIPINE BESYLATE AND OLMESARTAN MEDOXOMIL [Suspect]
     Indication: HYPERTENSION
     Dosage: 40/10 MG (1 IN 1 D),PER ORAL
     Route: 048
     Dates: start: 20090101

REACTIONS (2)
  - INFARCTION [None]
  - GENERALISED OEDEMA [None]
